FAERS Safety Report 4578400-9 (Version None)
Quarter: 2005Q1

REPORT INFORMATION
  Report Type: 
  Country: None (occurrence: None)
  Receive Date: 20050209
  Receipt Date: 20050128
  Transmission Date: 20050727
  Serious: Yes (Hospitalization)
  Sender: FDA-Public Use
  Company Number: S05-USA-00523-01

PATIENT
  Age: 60 Year
  Sex: Female

DRUGS (20)
  1. LEXAPRO [Suspect]
     Indication: DEPRESSION
     Dosage: 20 MG QD PO
     Route: 048
     Dates: start: 20030301, end: 20040101
  2. LEXAPRO [Suspect]
     Indication: DEPRESSION
     Dates: start: 20040101, end: 20040101
  3. WELLBUTRIN [Suspect]
     Indication: DEPRESSION
     Dosage: 300 MG QD PO
     Route: 048
     Dates: end: 20040101
  4. WELLBUTRIN [Suspect]
     Indication: DEPRESSION
     Dosage: 150 MG QD PO
     Route: 048
     Dates: start: 20040101, end: 20040101
  5. WELLBUTRIN [Suspect]
     Indication: DEPRESSION
     Dosage: 150 MCG BID PO
     Route: 048
     Dates: start: 20040101
  6. ATENOLOL [Concomitant]
  7. ISOSORBIDE [Concomitant]
  8. POTASSIUM CHLORIDE [Concomitant]
  9. ZOCOR [Concomitant]
  10. ASPIRIN [Concomitant]
  11. AVANDIA [Concomitant]
  12. NEXIUM [Concomitant]
  13. ARICEPT [Concomitant]
  14. NEURONTIN [Concomitant]
  15. DURAGESIC [Concomitant]
  16. HYDROCODONE [Concomitant]
  17. MULTIVITAMIN [Concomitant]
  18. MAGNESIUM [Concomitant]
  19. VITAMIN B-12 [Concomitant]
  20. DIAZEPAM [Concomitant]

REACTIONS (5)
  - CATHETER RELATED INFECTION [None]
  - COMA [None]
  - DRUG INTERACTION [None]
  - HYPOTENSION [None]
  - SEPSIS [None]
